FAERS Safety Report 7805933-1 (Version None)
Quarter: 2011Q4

REPORT INFORMATION
  Report Type: 
  Country: None (occurrence: None)
  Receive Date: 20111007
  Receipt Date: 20111007
  Transmission Date: 20120403
  Serious: No
  Sender: FDA-Public Use
  Company Number: None

PATIENT
  Age: 54 Year
  Sex: Female
  Weight: 55.3388 kg

DRUGS (1)
  1. XELODA [Suspect]
     Indication: BILE DUCT CANCER
     Dosage: 1500MG BID X 14 DAY BY MOUTH
     Route: 048
     Dates: start: 20110922, end: 20111005

REACTIONS (2)
  - HYPOAESTHESIA [None]
  - SWELLING FACE [None]
